FAERS Safety Report 18595720 (Version 2)
Quarter: 2021Q1

REPORT INFORMATION
  Report Type: Spontaneous
  Country: US (occurrence: US)
  Receive Date: 20201209
  Receipt Date: 20210310
  Transmission Date: 20210419
  Serious: Yes (Other)
  Sender: FDA-Public Use
  Company Number: US-TAKEDA-2020TUS054926

PATIENT
  Sex: Female
  Weight: 71.2 kg

DRUGS (25)
  1. CUVITRU [Suspect]
     Active Substance: HUMAN IMMUNOGLOBULIN G
     Indication: IMMUNODEFICIENCY COMMON VARIABLE
     Dosage: 15 GRAM, Q2WEEKS
     Route: 058
     Dates: start: 20200807
  2. VITAMIN D3 [Concomitant]
     Active Substance: CHOLECALCIFEROL
  3. OXYCODONE DAIICHI SANKYO [Concomitant]
  4. MAGNESIUM OXIDE. [Concomitant]
     Active Substance: MAGNESIUM OXIDE
  5. REXULTI [Concomitant]
     Active Substance: BREXPIPRAZOLE
  6. MULTIVITAMINS [VITAMINS NOS] [Concomitant]
     Active Substance: VITAMINS
  7. DIPHENHYDRAMINE. [Concomitant]
     Active Substance: DIPHENHYDRAMINE
  8. EPINEPHRINE. [Concomitant]
     Active Substance: EPINEPHRINE
  9. ATIVAN [Concomitant]
     Active Substance: LORAZEPAM
  10. LAMOTRIGINE. [Concomitant]
     Active Substance: LAMOTRIGINE
  11. TRAZODONE [Concomitant]
     Active Substance: TRAZODONE HYDROCHLORIDE
  12. IMITREX DF [Concomitant]
     Active Substance: SUMATRIPTAN SUCCINATE
  13. ACETAMINOPHEN. [Concomitant]
     Active Substance: ACETAMINOPHEN
  14. KETOROLAC [Concomitant]
     Active Substance: KETOROLAC TROMETHAMINE
  15. TOPIRAMATE. [Concomitant]
     Active Substance: TOPIRAMATE
  16. HYQVIA [Concomitant]
     Active Substance: HUMAN IMMUNOGLOBULIN G\HYALURONIDASE RECOMBINANT HUMAN
  17. DOXYCYCLINE. [Concomitant]
     Active Substance: DOXYCYCLINE
  18. BACTRIM [Concomitant]
     Active Substance: SULFAMETHOXAZOLE\TRIMETHOPRIM
  19. FIBERCON [Concomitant]
     Active Substance: CALCIUM POLYCARBOPHIL
  20. GABAPENTIN. [Concomitant]
     Active Substance: GABAPENTIN
  21. DESIPRAMINE [Concomitant]
     Active Substance: DESIPRAMINE
  22. MIRALAX [Concomitant]
     Active Substance: POLYETHYLENE GLYCOL 3350
  23. TROMETHAMINE. [Concomitant]
     Active Substance: TROMETHAMINE
  24. NORMAL SALINE [Concomitant]
     Active Substance: SODIUM CHLORIDE
  25. CVS ASPIRIN [Concomitant]
     Active Substance: ASPIRIN

REACTIONS (2)
  - Bunion operation [Unknown]
  - Urinary tract infection [Unknown]
